FAERS Safety Report 6362415-4 (Version None)
Quarter: 2009Q3

REPORT INFORMATION
  Report Type: 
  Country: None (occurrence: None)
  Receive Date: 20090918
  Receipt Date: 20090617
  Transmission Date: 20100115
  Serious: No
  Sender: FDA-Public Use
  Company Number: US-ABBOTT-09P-163-0574994-00

PATIENT
  Sex: Female
  Weight: 25.424 kg

DRUGS (3)
  1. HUMIRA [Suspect]
     Indication: JUVENILE ARTHRITIS
     Dates: start: 20080708, end: 20090511
  2. HUMIRA [Suspect]
     Dates: start: 20090511
  3. HUMIRA [Suspect]

REACTIONS (6)
  - ARTHRALGIA [None]
  - ARTHRITIS [None]
  - DRUG INEFFECTIVE [None]
  - JOINT SWELLING [None]
  - RESPIRATORY TRACT INFECTION [None]
  - UVEITIS [None]
